FAERS Safety Report 9450400 (Version 1)
Quarter: 2013Q3

REPORT INFORMATION
  Report Type: Spontaneous
  Country: GB (occurrence: GB)
  Receive Date: 20130809
  Receipt Date: 20130809
  Transmission Date: 20140515
  Serious: Yes (Other)
  Sender: FDA-Public Use
  Company Number: GB-B.I. PHARMACEUTICALS,INC./RIDGEFIELD-2013-UK-01610UK

PATIENT
  Age: 58 Year
  Sex: Male
  Weight: 62 kg

DRUGS (8)
  1. TRAJENTA [Suspect]
     Route: 048
     Dates: start: 20130326, end: 20130722
  2. AMLODIPINE [Concomitant]
     Dates: start: 20130326
  3. ASPIRIN [Concomitant]
     Dates: start: 20130326
  4. BENDROFLUMETHIAZIDE [Concomitant]
     Dates: start: 20130326
  5. GLICLAZIDE [Concomitant]
     Dates: start: 20130326
  6. METFORMIN [Concomitant]
     Dates: start: 20130326
  7. RAMIPRIL [Concomitant]
     Dates: start: 20130326
  8. SIMVASTATIN [Concomitant]
     Dates: start: 20130326

REACTIONS (3)
  - Blister [Recovered/Resolved]
  - Pruritus [Recovered/Resolved]
  - Swelling [Unknown]
